FAERS Safety Report 6227463-3 (Version None)
Quarter: 2009Q2

REPORT INFORMATION
  Report Type: 
  Country: None (occurrence: None)
  Receive Date: 20090612
  Receipt Date: 20090601
  Transmission Date: 20091009
  Serious: Yes (Other)
  Sender: FDA-Public Use
  Company Number: PHHY2009MX19849

PATIENT
  Age: 68 Year
  Sex: Female

DRUGS (6)
  1. DIOVAN HCT [Suspect]
     Indication: HYPERTENSION
     Dosage: 2 TABLETS (160/12.5 MG ) PER DAY
     Route: 048
     Dates: start: 20080101
  2. GALVUS MET [Suspect]
     Dosage: 2 TABLETS PER DAY
     Route: 048
  3. LYRICA [Concomitant]
     Dosage: 2 TABLETS PER DAY
     Route: 048
  4. LASILACTON [Concomitant]
     Dosage: 3 TABLETS PER DAY
     Route: 048
  5. OMEPRAZOL [Concomitant]
     Dosage: 1 TABLET PER DAY
     Route: 048
  6. INSULIN [Concomitant]
     Dosage: 10 U PER DAY
     Route: 048

REACTIONS (2)
  - GASTRIC ULCER HAEMORRHAGE [None]
  - SPINAL CORD HAEMORRHAGE [None]
